FAERS Safety Report 4683519-8 (Version None)
Quarter: 2005Q2

REPORT INFORMATION
  Report Type: 
  Country: None (occurrence: None)
  Receive Date: 20050606
  Receipt Date: 20050606
  Transmission Date: 20051028
  Serious: No
  Sender: FDA-Public Use
  Company Number: None

PATIENT
  Age: 59 Year
  Sex: Male

DRUGS (4)
  1. IRON DEXTRAN [Suspect]
     Indication: ANAEMIA
     Dosage: 500MG    ONE TIME    INTRAVENOU
     Route: 042
     Dates: start: 20050418, end: 20050418
  2. CEFAZOLIN [Concomitant]
  3. PROMETHAZINE [Concomitant]
  4. CALCIUM CHLORIDE [Concomitant]

REACTIONS (3)
  - BACK PAIN [None]
  - CHEST PAIN [None]
  - INFUSION RELATED REACTION [None]
